FAERS Safety Report 8181100-X (Version None)
Quarter: 2012Q1

REPORT INFORMATION
  Report Type: 
  Country: None (occurrence: None)
  Receive Date: 20120301
  Receipt Date: 20120301
  Transmission Date: 20120608
  Serious: Yes (Hospitalization)
  Sender: FDA-Public Use
  Company Number: None

PATIENT
  Age: 79 Year
  Sex: Male
  Weight: 69 kg

DRUGS (2)
  1. AMIODARONE HCL [Suspect]
     Indication: ORTHOSTATIC HYPOTENSION
     Dosage: 100 MG PO
     Route: 048
     Dates: start: 20110928, end: 20120225
  2. METOPROLOL SUCCINATE [Suspect]
     Indication: ORTHOSTATIC HYPOTENSION
     Dosage: 12.5 MG PO
     Route: 048
     Dates: start: 20100324, end: 20120225

REACTIONS (2)
  - SYNCOPE [None]
  - ORTHOSTATIC HYPOTENSION [None]
